FAERS Safety Report 4966760-6 (Version None)
Quarter: 2006Q2

REPORT INFORMATION
  Report Type: 
  Country: None (occurrence: None)
  Receive Date: 20060407
  Receipt Date: 20051201
  Transmission Date: 20061013
  Serious: Yes (Hospitalization, Disabling)
  Sender: FDA-Public Use
  Company Number: US-MERCK-0512USA00465

PATIENT
  Age: 57 Year
  Sex: Male
  Weight: 84 kg

DRUGS (4)
  1. VIOXX [Suspect]
     Indication: INTERVERTEBRAL DISC DEGENERATION
     Route: 048
     Dates: start: 20000501, end: 20000901
  2. VIOXX [Suspect]
     Route: 048
     Dates: start: 20010501, end: 20010601
  3. VIOXX [Suspect]
     Indication: ARTHRITIS
     Route: 048
     Dates: start: 20000501, end: 20000901
  4. VIOXX [Suspect]
     Route: 048
     Dates: start: 20010501, end: 20010601

REACTIONS (7)
  - ABDOMINAL PAIN [None]
  - BACK DISORDER [None]
  - BACK PAIN [None]
  - CARDIAC DISORDER [None]
  - COUGH [None]
  - MYOCARDIAL INFARCTION [None]
  - PULMONARY CONGESTION [None]
